FAERS Safety Report 8031076-0 (Version None)
Quarter: 2012Q1

REPORT INFORMATION
  Report Type: 
  Country: None (occurrence: None)
  Receive Date: 20120109
  Receipt Date: 20120104
  Transmission Date: 20120608
  Serious: Yes (Other)
  Sender: FDA-Public Use
  Company Number: US-PFIZER INC-2012003391

PATIENT

DRUGS (1)
  1. LIPITOR [Suspect]
     Dosage: 10 MG, 1X/DAY

REACTIONS (3)
  - VASCULAR GRAFT [None]
  - STENT PLACEMENT [None]
  - CARDIAC DISORDER [None]
